FAERS Safety Report 6902857-9 (Version None)
Quarter: 2010Q3

REPORT INFORMATION
  Report Type: 
  Country: None (occurrence: None)
  Receive Date: 20100803
  Receipt Date: 20080612
  Transmission Date: 20110219
  Serious: No
  Sender: FDA-Public Use
  Company Number: US-PFIZER INC-2008050680

PATIENT
  Sex: Female
  Weight: 72.6 kg

DRUGS (1)
  1. LYRICA [Suspect]
     Indication: FIBROMYALGIA
     Route: 048
     Dates: start: 20080601

REACTIONS (5)
  - BREAST TENDERNESS [None]
  - DRY MOUTH [None]
  - DRY SKIN [None]
  - EUPHORIC MOOD [None]
  - FEELING ABNORMAL [None]
